FAERS Safety Report 8557719-0 (Version None)
Quarter: 2012Q3

REPORT INFORMATION
  Report Type: 
  Country: None (occurrence: None)
  Receive Date: 20120801
  Receipt Date: 20120723
  Transmission Date: 20120928
  Serious: Yes (Other)
  Sender: FDA-Public Use
  Company Number: US-GLAXOSMITHKLINE-A0971178A

PATIENT
  Age: 74 Year
  Sex: Male
  Weight: 68.5 kg

DRUGS (9)
  1. GAMMAGARD [Concomitant]
  2. LEVOTHYROXINE SODIUM [Concomitant]
  3. FLOMAX [Concomitant]
  4. BICALUTAMIDE [Concomitant]
  5. DUTASTERIDE [Concomitant]
  6. INVESTIGATIONAL DRUG [Suspect]
     Indication: CHRONIC LYMPHOCYTIC LEUKAEMIA
     Dosage: 200MG TWICE PER DAY
     Route: 048
     Dates: start: 20110611
  7. OFATUMUMAB [Suspect]
     Indication: CHRONIC LYMPHOCYTIC LEUKAEMIA
     Dates: start: 20110825, end: 20120120
  8. DOCUSATE [Concomitant]
  9. ALLOPURINOL [Concomitant]

REACTIONS (1)
  - ACUTE LUNG INJURY [None]
